FAERS Safety Report 13436240 (Version 1)
Quarter: 2017Q2

REPORT INFORMATION
  Report Type: Report from Study
  Country: US (occurrence: US)
  Receive Date: 20170413
  Receipt Date: 20170413
  Transmission Date: 20170830
  Serious: Yes (Death)
  Sender: FDA-Public Use
  Company Number: US-JNJFOC-20170403534

PATIENT
  Age: 84 Year
  Sex: Male

DRUGS (1)
  1. IMBRUVICA [Suspect]
     Active Substance: IBRUTINIB
     Indication: DEEP VEIN THROMBOSIS
     Route: 048
     Dates: start: 20161206

REACTIONS (5)
  - Off label use [Recovered/Resolved]
  - Respiratory failure [Fatal]
  - Pneumonia [Fatal]
  - Sepsis [Fatal]
  - Product use in unapproved indication [Recovered/Resolved]

NARRATIVE: CASE EVENT DATE: 20161206
